FAERS Safety Report 8094175-3 (Version None)
Quarter: 2012Q1

REPORT INFORMATION
  Report Type: 
  Country: None (occurrence: None)
  Receive Date: 20120130
  Receipt Date: 20120130
  Transmission Date: 20120608
  Serious: Yes (Other)
  Sender: FDA-Public Use
  Company Number: None

PATIENT
  Age: 56 Year
  Sex: Female
  Weight: 49.895 kg

DRUGS (1)
  1. ZOMETA [Suspect]
     Indication: OSTEOPOROSIS
     Dosage: ONE INFUSION
     Dates: start: 20120113, end: 20120113

REACTIONS (9)
  - HEADACHE [None]
  - PAIN IN JAW [None]
  - SINUS DISORDER [None]
  - HYPOAESTHESIA [None]
  - DIARRHOEA [None]
  - MUSCLE SPASMS [None]
  - VOMITING [None]
  - BONE PAIN [None]
  - GASTROOESOPHAGEAL REFLUX DISEASE [None]
